FAERS Safety Report 5412267-1 (Version None)
Quarter: 2007Q3

REPORT INFORMATION
  Report Type: 
  Country: None (occurrence: None)
  Receive Date: 20070713
  Receipt Date: 20070523
  Transmission Date: 20080115
  Serious: No
  Sender: FDA-Public Use
  Company Number: 2007SP001931

PATIENT
  Age: 31 Year
  Sex: Male
  Weight: 95.2554 kg

DRUGS (2)
  1. LUNESTA [Suspect]
     Indication: INSOMNIA
     Dosage: 3 MG;HS;ORAL  2 MG;HS;ORAL
     Route: 048
     Dates: start: 20050701, end: 20061201
  2. LUNESTA [Suspect]
     Indication: INSOMNIA
     Dosage: 3 MG;HS;ORAL  2 MG;HS;ORAL
     Route: 048
     Dates: start: 20061201, end: 20070401

REACTIONS (1)
  - SOMNAMBULISM [None]
